FAERS Safety Report 7430202-1 (Version None)
Quarter: 2011Q2

REPORT INFORMATION
  Report Type: 
  Country: None (occurrence: None)
  Receive Date: 20110421
  Receipt Date: 20100827
  Transmission Date: 20111010
  Serious: No
  Sender: FDA-Public Use
  Company Number: US-ASTRAZENECA-2010SE40557

PATIENT
  Sex: Male

DRUGS (3)
  1. GLIMEPIRIDE [Suspect]
     Route: 065
  2. TOPROL-XL [Suspect]
     Route: 048
  3. ASPIRIN [Suspect]
     Route: 065

REACTIONS (2)
  - RHINORRHOEA [None]
  - UPPER-AIRWAY COUGH SYNDROME [None]
